FAERS Safety Report 24540117 (Version 1)
Quarter: 2024Q4

REPORT INFORMATION
  Report Type: Spontaneous
  Country: CH (occurrence: CH)
  Receive Date: 20241023
  Receipt Date: 20241023
  Transmission Date: 20250115
  Serious: Yes (Life-Threatening, Hospitalization, Other)
  Sender: TEVA
  Company Number: None

PATIENT
  Age: 70 Year
  Sex: Female
  Weight: 64 kg

DRUGS (3)
  1. DEXAMETHASONE [Suspect]
     Active Substance: DEXAMETHASONE
     Indication: Back pain
     Dosage: MEPHAMESON
     Route: 030
     Dates: start: 20230811, end: 20230811
  2. DICLOFENAC SODIUM\LIDOCAINE [Suspect]
     Active Substance: DICLOFENAC SODIUM\LIDOCAINE
     Indication: Back pain
     Dosage: 1 SEPARATED DOSES, DICLOFENAC MEPHA
     Route: 030
     Dates: start: 20230810, end: 20230811
  3. NOVALGIN (METAMIZOLE SODIUM) [Suspect]
     Active Substance: METAMIZOLE SODIUM
     Indication: Back pain
     Route: 030
     Dates: start: 20230810, end: 20230810

REACTIONS (2)
  - Sepsis [Recovering/Resolving]
  - Cellulitis [Recovering/Resolving]

NARRATIVE: CASE EVENT DATE: 20230813
